FAERS Safety Report 5410878-0 (Version None)
Quarter: 2007Q3

REPORT INFORMATION
  Report Type: 
  Country: None (occurrence: None)
  Receive Date: 20070810
  Receipt Date: 20070806
  Transmission Date: 20080115
  Serious: Yes (Other)
  Sender: FDA-Public Use
  Company Number: PHNR2007AU01139

PATIENT
  Age: 24 Year
  Sex: Male

DRUGS (7)
  1. CLOZARIL [Suspect]
     Indication: SCHIZOPHRENIA
     Dosage: 12.5 - 600MG DAILY AT NIGHT
     Route: 048
     Dates: start: 20030526, end: 20070523
  2. CLOZARIL [Suspect]
     Dosage: 475 MG, QD AT NIGHT
     Route: 048
     Dates: start: 20070523
  3. SOLIAN [Concomitant]
     Dosage: 400 MG, QHS
  4. EPILIM [Concomitant]
     Dosage: 1200 MG, QHS
  5. LARGACTIL [Suspect]
     Dosage: 50 MG AT NIGHT WHEN NECESSARY
     Route: 048
     Dates: end: 20070518
  6. EFFEXOR XR [Concomitant]
     Dosage: 225 MG, IN THE MORNING
  7. PANTOPRAZOLE SODIUM [Concomitant]
     Dosage: 40 MG, IN THE MORNING

REACTIONS (2)
  - HYPOTENSION [None]
  - LEFT VENTRICULAR DYSFUNCTION [None]
